FAERS Safety Report 15426033 (Version 1)
Quarter: 2018Q3

REPORT INFORMATION
  Report Type: Spontaneous
  Country: US (occurrence: US)
  Receive Date: 20180925
  Receipt Date: 20180925
  Transmission Date: 20181010
  Serious: Yes (Other)
  Sender: FDA-Public Use
  Company Number: US-ELI_LILLY_AND_COMPANY-US201809008428

PATIENT
  Sex: Female

DRUGS (1)
  1. FORTEO [Suspect]
     Active Substance: TERIPARATIDE
     Indication: PRODUCT USED FOR UNKNOWN INDICATION
     Dosage: UNK, UNKNOWN
     Route: 065

REACTIONS (8)
  - Foot fracture [Unknown]
  - Blood pressure decreased [Unknown]
  - Fall [Unknown]
  - Asthenia [Unknown]
  - Wrong technique in product usage process [Unknown]
  - Patella fracture [Unknown]
  - Temperature intolerance [Unknown]
  - Syncope [Unknown]

NARRATIVE: CASE EVENT DATE: 2017
